FAERS Safety Report 9988895 (Version 2)
Quarter: 2014Q1

REPORT INFORMATION
  Report Type: Report from Study
  Country: US (occurrence: US)
  Receive Date: 20140310
  Receipt Date: 20140310
  Transmission Date: 20141002
  Serious: Yes (Hospitalization)
  Sender: FDA-Public Use
  Company Number: US-ABBVIE-13P-163-1111897-00

PATIENT
  Age: 28 Year
  Sex: Female
  Weight: 62.2 kg

DRUGS (2)
  1. HUMIRA [Suspect]
     Indication: CROHN^S DISEASE
     Route: 058
     Dates: start: 201108, end: 201205
  2. TPN [Concomitant]
     Indication: PRODUCT USED FOR UNKNOWN INDICATION
     Dosage: TAKIING AT HOME

REACTIONS (5)
  - Liver abscess [Recovered/Resolved]
  - Crohn^s disease [Recovered/Resolved]
  - Pain [Recovered/Resolved]
  - Drug ineffective [Recovered/Resolved]
  - Clostridium difficile infection [Recovered/Resolved]
